FAERS Safety Report 8824292 (Version 2)
Quarter: 2012Q4

REPORT INFORMATION
  Report Type: 
  Country: DE (occurrence: DE)
  Receive Date: 20121004
  Receipt Date: 20121015
  Transmission Date: 20130627
  Serious: Yes (Death)
  Sender: FDA-Public Use
  Company Number: DE-US-EMD SERONO, INC.-7164444

PATIENT
  Age: 59 Year
  Sex: Male
  Weight: 80 kg

DRUGS (5)
  1. REBIF [Suspect]
     Indication: MULTIPLE SCLEROSIS
  2. FAMPRIDINE [Suspect]
     Indication: MOVEMENT DISORDER
     Route: 048
     Dates: start: 20111010, end: 20111213
  3. AMANTADINE [Concomitant]
     Indication: FATIGUE
     Route: 048
     Dates: start: 2009, end: 20111213
  4. MIRTAZEPINE (MIRTAZAPINE) [Concomitant]
     Indication: DEPRESSION
     Route: 048
     Dates: start: 201104, end: 20111213
  5. TOLPERISON [Concomitant]
     Indication: MUSCLE SPASTICITY
     Route: 048
     Dates: start: 2010, end: 20111213

REACTIONS (2)
  - Cardiac arrest [Fatal]
  - Sudden death [None]
